FAERS Safety Report 23074756 (Version 4)
Quarter: 2024Q4

REPORT INFORMATION
  Report Type: Spontaneous
  Country: FR (occurrence: FR)
  Receive Date: 20231017
  Receipt Date: 20241004
  Transmission Date: 20250115
  Serious: Yes (Life-Threatening, Hospitalization, Other)
  Sender: WAYLIS
  Company Number: FR-RECORDATI-2023006853

PATIENT
  Age: 40 Year
  Sex: Male

DRUGS (2)
  1. DIAZEPAM [Suspect]
     Active Substance: DIAZEPAM
     Indication: Product used for unknown indication
     Dosage: UNK
  2. METHADONE HYDROCHLORIDE [Suspect]
     Active Substance: METHADONE HYDROCHLORIDE
     Indication: Product used for unknown indication
     Dosage: UNK

REACTIONS (16)
  - Haemorrhage intracranial [Recovered/Resolved with Sequelae]
  - Sensory loss [Unknown]
  - Acute hepatic failure [Unknown]
  - Cardiac failure [Unknown]
  - Aphasia [Unknown]
  - Anterograde amnesia [Unknown]
  - Pneumonia aspiration [Unknown]
  - Toxicity to various agents [Unknown]
  - Confusional state [Unknown]
  - Motor dysfunction [Unknown]
  - Pyramidal tract syndrome [Unknown]
  - Executive dysfunction [Unknown]
  - Acute kidney injury [Unknown]
  - Paralysis [Recovered/Resolved with Sequelae]
  - Coma [Recovered/Resolved with Sequelae]
  - Poisoning [Unknown]
